FAERS Safety Report 5880625-7 (Version None)
Quarter: 2008Q3

REPORT INFORMATION
  Report Type: 
  Country: None (occurrence: None)
  Receive Date: 20080912
  Receipt Date: 20080822
  Transmission Date: 20090109
  Serious: Yes (Death, Hospitalization)
  Sender: FDA-Public Use
  Company Number: BE-SANOFI-SYNTHELABO-A01200810968

PATIENT
  Age: 86 Year
  Sex: Female
  Weight: 50 kg

DRUGS (8)
  1. SERETIDE [Concomitant]
     Indication: CHRONIC OBSTRUCTIVE PULMONARY DISEASE
     Dosage: UNK
     Route: 048
     Dates: start: 20050101
  2. FOSAMAX [Concomitant]
     Indication: OSTEOPOROSIS
     Route: 048
     Dates: start: 20050101, end: 20080515
  3. PROGOR [Concomitant]
     Indication: ANGINA PECTORIS
     Route: 048
     Dates: start: 20070101, end: 20080515
  4. TRITACE [Concomitant]
     Indication: HYPERTENSION
     Route: 048
     Dates: start: 20060101, end: 20080515
  5. BIOFENAC [Suspect]
     Indication: PAIN
     Route: 048
     Dates: start: 20070301, end: 20080515
  6. ACETYLCYSTEINE [Concomitant]
     Indication: CHRONIC OBSTRUCTIVE PULMONARY DISEASE
     Dosage: UNK
     Route: 048
     Dates: start: 20060101, end: 20080515
  7. ASPIRIN [Suspect]
     Indication: MYOCARDIAL INFARCTION
     Route: 048
     Dates: start: 20040101, end: 20080515
  8. PLAVIX [Suspect]
     Indication: MYOCARDIAL INFARCTION
     Route: 048
     Dates: start: 20040101, end: 20080515

REACTIONS (4)
  - ANAEMIA [None]
  - ANOREXIA [None]
  - GASTRODUODENAL ULCER [None]
  - OESOPHAGITIS ULCERATIVE [None]
